FAERS Safety Report 24566756 (Version 1)
Quarter: 2024Q4

REPORT INFORMATION
  Report Type: Spontaneous
  Country: HU (occurrence: HU)
  Receive Date: 20241030
  Receipt Date: 20241030
  Transmission Date: 20250115
  Serious: Yes (Death, Other)
  Sender: ASTELLAS
  Company Number: HU-ASTELLAS-2024-AER-015412

PATIENT
  Age: 66 Year
  Sex: Female

DRUGS (1)
  1. ISAVUCONAZONIUM SULFATE [Suspect]
     Active Substance: ISAVUCONAZONIUM SULFATE
     Indication: Mucormycosis
     Dosage: UNK, UNKNOWN
     Route: 050

REACTIONS (1)
  - Pneumonia [Fatal]
